FAERS Safety Report 24385964 (Version 2)
Quarter: 2025Q4

REPORT INFORMATION
  Report Type: Report from Study
  Country: US (occurrence: US)
  Receive Date: 20241001
  Receipt Date: 20251111
  Transmission Date: 20260117
  Serious: Yes (Hospitalization, Other)
  Sender: ABBVIE
  Company Number: US-ABBVIE-5941296

PATIENT
  Age: 74 Year
  Sex: Female

DRUGS (2)
  1. LINZESS [Suspect]
     Active Substance: LINACLOTIDE
     Indication: Product used for unknown indication
     Route: 048
     Dates: start: 20240101
  2. AMLODIPINE [Concomitant]
     Active Substance: AMLODIPINE BESYLATE
     Indication: Product used for unknown indication

REACTIONS (2)
  - Intestinal obstruction [Not Recovered/Not Resolved]
  - Intestinal stenosis [Not Recovered/Not Resolved]
